FAERS Safety Report 20052758 (Version 1)
Quarter: 2021Q4

REPORT INFORMATION
  Report Type: Spontaneous
  Country: US (occurrence: None)
  Receive Date: 20211109
  Receipt Date: 20211109
  Transmission Date: 20220303
  Serious: Yes (Other)
  Sender: FDA-Public Use
  Company Number: None

PATIENT
  Age: 56 Year
  Sex: Male
  Weight: 88.65 kg

DRUGS (14)
  1. PANZYGA [Suspect]
     Active Substance: HUMAN IMMUNOGLOBULIN G
     Indication: Chronic inflammatory demyelinating polyradiculoneuropathy
     Dosage: OTHER FREQUENCY : QDAY FOR 3 DAYS;?
     Route: 042
     Dates: start: 20211031, end: 20211102
  2. PANZYGA [Suspect]
     Active Substance: HUMAN IMMUNOGLOBULIN G
     Indication: Chronic inflammatory demyelinating polyradiculoneuropathy
     Dosage: OTHER FREQUENCY : QDAY FOR 3 DAYS;?
     Route: 042
     Dates: start: 20211031, end: 20211102
  3. FLONASE [Concomitant]
     Active Substance: FLUTICASONE PROPIONATE
  4. Gabapentin 1200mg [Concomitant]
  5. OXYCODONE [Concomitant]
     Active Substance: OXYCODONE
  6. Oxycontin 10mg [Concomitant]
  7. TRAZODONE [Concomitant]
     Active Substance: TRAZODONE HYDROCHLORIDE
  8. Naproxen 440mg [Concomitant]
  9. Acetaminophen 1000mg [Concomitant]
  10. ASCORBIC ACID [Concomitant]
     Active Substance: ASCORBIC ACID
  11. Fish Oil 1000mg [Concomitant]
  12. SINGULAIR [Concomitant]
     Active Substance: MONTELUKAST SODIUM
  13. Vitamin B12 10mg PO [Concomitant]
  14. Vitamin D3 25 mcg PO [Concomitant]

REACTIONS (1)
  - Tinnitus [None]

NARRATIVE: CASE EVENT DATE: 20211031
